FAERS Safety Report 20672162 (Version 2)
Quarter: 2022Q3

REPORT INFORMATION
  Report Type: Spontaneous
  Country: IE (occurrence: None)
  Receive Date: 20220405
  Receipt Date: 20220817
  Transmission Date: 20221026
  Serious: Yes (Life-Threatening)
  Sender: FDA-Public Use
  Company Number: IE-ROCHE-3064638

PATIENT
  Age: 14 Year
  Sex: Female

DRUGS (14)
  1. RIVOTRIL [Suspect]
     Active Substance: CLONAZEPAM
     Indication: Anxiety
     Route: 048
     Dates: start: 20200620, end: 20200627
  2. FLUOXETINE [Suspect]
     Active Substance: FLUOXETINE HYDROCHLORIDE
     Indication: Anxiety
     Dosage: 20 MG, DAILY (PROZAC CAPSULES 20 MG, TWO IN THE MORNING. (ON THAT DOSE FOR APPROX. 8 MONTHS))
     Route: 048
     Dates: start: 201911, end: 202103
  3. FLUOXETINE [Suspect]
     Active Substance: FLUOXETINE HYDROCHLORIDE
     Dosage: 20 MG, DAILY (FLUZAC 20 MG, TWO CAPSULES IN THE MORNING)
     Route: 048
  4. FLUOXETINE [Suspect]
     Active Substance: FLUOXETINE HYDROCHLORIDE
     Dosage: 20 MG, DAILY (PROZAMEL 20 MG, TWO CAPSULES IN THE MORNING)
     Route: 048
  5. ARIPIPRAZOLE [Concomitant]
     Active Substance: ARIPIPRAZOLE
     Dosage: THE DOSE RANGE WAS 2.5 MG TO 7.5 MG PER DAY
     Route: 048
     Dates: start: 20190719, end: 20200131
  6. ARIPIPRAZOLE [Concomitant]
     Active Substance: ARIPIPRAZOLE
     Dosage: THE DOSE RANGE WAS 2.5 MG TO 7.5 MG PER DAY
     Route: 048
     Dates: start: 20190719, end: 20200131
  7. CONCERTA [Concomitant]
     Active Substance: METHYLPHENIDATE HYDROCHLORIDE
  8. MELATONIN [Concomitant]
     Active Substance: MELATONIN
  9. MEFENAMIC ACID [Concomitant]
     Active Substance: MEFENAMIC ACID
  10. OLANZAPINE [Concomitant]
     Active Substance: OLANZAPINE
  11. LISDEXAMFETAMINE DIMESYLATE [Concomitant]
     Active Substance: LISDEXAMFETAMINE DIMESYLATE
  12. ALTAVITA D3 [Concomitant]
  13. DIAZEPAM [Concomitant]
     Active Substance: DIAZEPAM
     Dosage: THE DOSE RANGE WAS 2.5 TO 6 MG PER DAY
     Dates: start: 201909, end: 202001
  14. DIAZEPAM [Concomitant]
     Active Substance: DIAZEPAM
     Dosage: THE DOSE RANGE WAS 2.5 TO 6 MG PER DAY
     Dates: start: 201909, end: 202001

REACTIONS (3)
  - Intentional self-injury [Recovered/Resolved]
  - Judgement impaired [Recovered/Resolved]
  - Prescription drug used without a prescription [Unknown]

NARRATIVE: CASE EVENT DATE: 20200620
